FAERS Safety Report 24301693 (Version 1)
Quarter: 2024Q3

REPORT INFORMATION
  Report Type: Spontaneous
  Country: GB (occurrence: GB)
  Receive Date: 20240910
  Receipt Date: 20240910
  Transmission Date: 20241016
  Serious: Yes (Other)
  Sender: ACCORD
  Company Number: None

PATIENT
  Age: 53 Year

DRUGS (12)
  1. CARBOPLATIN [Suspect]
     Active Substance: CARBOPLATIN
     Indication: Product used for unknown indication
     Dosage: FOR 4 CYCLES COMPLETED?LAST HAD 09/04/24
  2. CYCLOPHOSPHAMIDE [Suspect]
     Active Substance: CYCLOPHOSPHAMIDE
     Indication: Product used for unknown indication
     Dosage: LAST HAD 30/04/24?1G POWDER FOR SOLUTION FOR INJECTION VIALS
     Dates: end: 20240430
  3. EPIRUBICIN [Suspect]
     Active Substance: EPIRUBICIN
     Indication: Product used for unknown indication
     Dosage: LAST HAD 30/04/2024
     Dates: end: 20240430
  4. PACLITAXEL [Suspect]
     Active Substance: PACLITAXEL
     Indication: Product used for unknown indication
     Dosage: FOR 12 CYCLES?LAST HAD 30/04/2
  5. PEMBROLIZUMAB [Suspect]
     Active Substance: PEMBROLIZUMAB
     Indication: Product used for unknown indication
     Dosage: LAST HAD 30/04/24
     Dates: end: 20240430
  6. DEXAMETHASONE [Concomitant]
     Active Substance: DEXAMETHASONE
     Dosage: FOR 3 DAYS POST CHEMOTHERAPY
  7. DOMPERIDONE [Concomitant]
     Active Substance: DOMPERIDONE
     Dosage: STRENGTH: 10MG?UP TO THREE TIMES A DAY. MAXIMUM 3 IN 24 HOURS 84 TABLE
  8. FILGRASTIM [Concomitant]
     Active Substance: FILGRASTIM
     Dosage: STRENGTH: 480MG
     Route: 058
  9. BUTYLSCOPOLAMINE BROMIDE [Concomitant]
     Active Substance: BUTYLSCOPOLAMINE BROMIDE
     Dosage: STRENGTH: 10MG?TWO TO BE TAKEN
  10. LEVOTHYROXINE SODIUM [Concomitant]
     Active Substance: LEVOTHYROXINE SODIUM
     Dosage: STRENGTH: 100 MICROGRAM?2 EACH DAY AS DIRECTED EACH MORNING
  11. ONDANSETRON [Concomitant]
     Active Substance: ONDANSETRON
     Dosage: STRENGTH: 8MG?UP TO TWICE DAILY AS REQUIRED AS PER ONCOLOGIST
  12. PROMETHAZINE HYDROCHLORIDE [Concomitant]
     Active Substance: PROMETHAZINE HYDROCHLORIDE
     Dosage: STRENGTH: 25MG?AT NIGHT AS REQUIRED AS PER ONCOLOGIST

REACTIONS (1)
  - Neutropenic sepsis [Unknown]
